FAERS Safety Report 6409442-6 (Version None)
Quarter: 2009Q4

REPORT INFORMATION
  Report Type: 
  Country: None (occurrence: None)
  Receive Date: 20091019
  Receipt Date: 20091019
  Transmission Date: 20100525
  Serious: Yes (Life-Threatening, Hospitalization, Other)
  Sender: FDA-Public Use
  Company Number: None

PATIENT
  Age: 59 Year
  Sex: Male
  Weight: 74.8435 kg

DRUGS (1)
  1. CLARITHROMYCIN [Suspect]
     Indication: RESPIRATORY TRACT INFECTION
     Dates: start: 20090827, end: 20090905

REACTIONS (2)
  - HEART RATE INCREASED [None]
  - HYPERTENSION [None]
